FAERS Safety Report 5098952-2 (Version None)
Quarter: 2006Q3

REPORT INFORMATION
  Report Type: 
  Country: None (occurrence: None)
  Receive Date: 20060907
  Receipt Date: 20060831
  Transmission Date: 20061208
  Serious: Yes (Congenital Anomaly)
  Sender: FDA-Public Use
  Company Number: PHNU2006PL02995

PATIENT

DRUGS (1)
  1. TRILEPTAL [Suspect]
     Dosage: MATERNAL DOSE: 600 MG/D
     Route: 064

REACTIONS (3)
  - DRUG EXPOSURE DURING PREGNANCY [None]
  - PREMATURE BABY [None]
  - STRABISMUS [None]
